FAERS Safety Report 24635970 (Version 3)
Quarter: 2025Q3

REPORT INFORMATION
  Report Type: Spontaneous
  Country: US (occurrence: US)
  Receive Date: 20241119
  Receipt Date: 20250820
  Transmission Date: 20251020
  Serious: No
  Sender: CATALYST PHARMA
  Company Number: US-CATALYST PHARMACEUTICALS-US-CATA-24-01218

PATIENT
  Sex: Male
  Weight: 44.898 kg

DRUGS (2)
  1. AGAMREE [Suspect]
     Active Substance: VAMOROLONE
     Indication: Duchenne muscular dystrophy
     Route: 048
  2. AGAMREE [Suspect]
     Active Substance: VAMOROLONE
     Dosage: 6.3 ML DAILY
     Route: 048
     Dates: start: 20240808

REACTIONS (1)
  - Weight increased [Not Recovered/Not Resolved]

NARRATIVE: CASE EVENT DATE: 20240101
